FAERS Safety Report 7928588-4 (Version None)
Quarter: 2011Q4

REPORT INFORMATION
  Report Type: 
  Country: None (occurrence: None)
  Receive Date: 20111118
  Receipt Date: 20111109
  Transmission Date: 20120403
  Serious: Yes (Other)
  Sender: FDA-Public Use
  Company Number: PL-UCBSA-045446

PATIENT
  Age: 53 Year
  Sex: Male
  Weight: 69 kg

DRUGS (2)
  1. XYZAL [Suspect]
     Dates: start: 20111010, end: 20111010
  2. XYZAL [Suspect]
     Indication: RASH
     Dates: start: 20111003, end: 20111003

REACTIONS (1)
  - ARRHYTHMIA [None]
